FAERS Safety Report 8238370-9 (Version None)
Quarter: 2012Q1

REPORT INFORMATION
  Report Type: 
  Country: None (occurrence: None)
  Receive Date: 20120327
  Receipt Date: 20120323
  Transmission Date: 20120608
  Serious: Yes (Death, Life-Threatening, Hospitalization)
  Sender: FDA-Public Use
  Company Number: FR-ASTRAZENECA-2012SE19838

PATIENT
  Age: 33 Year
  Sex: Female

DRUGS (6)
  1. ZOPLICONE [Concomitant]
  2. QUETIAPINE FUMARATE [Suspect]
     Indication: PSYCHOTIC DISORDER
     Route: 048
  3. ZOLPIDEM [Concomitant]
  4. XANAX [Concomitant]
  5. LEPTICUR [Concomitant]
  6. LOXAPINE HCL [Concomitant]

REACTIONS (3)
  - PULMONARY EMBOLISM [None]
  - INTENTIONAL OVERDOSE [None]
  - SUICIDE ATTEMPT [None]
